FAERS Safety Report 4422218-4 (Version None)
Quarter: 2004Q3

REPORT INFORMATION
  Report Type: 
  Country: None (occurrence: None)
  Receive Date: 20040810
  Receipt Date: 20040729
  Transmission Date: 20050211
  Serious: Yes (Other)
  Sender: FDA-Public Use
  Company Number: JP-JNJFOC-20040800855

PATIENT
  Sex: Male

DRUGS (1)
  1. LEVOFLOXACIN [Suspect]
     Indication: EPIDIDYMITIS
     Route: 049
     Dates: start: 20040709, end: 20040711

REACTIONS (4)
  - BLOOD CREATINE PHOSPHOKINASE INCREASED [None]
  - GRIP STRENGTH DECREASED [None]
  - MYALGIA [None]
  - RHABDOMYOLYSIS [None]
